FAERS Safety Report 15454720 (Version 1)
Quarter: 2018Q4

REPORT INFORMATION
  Report Type: Spontaneous
  Country: JP (occurrence: JP)
  Receive Date: 20181002
  Receipt Date: 20181002
  Transmission Date: 20190204
  Serious: Yes (Other)
  Sender: FDA-Public Use
  Company Number: JP-BAYER-2018-179769

PATIENT
  Age: 45 Year
  Sex: Male

DRUGS (2)
  1. ARGATROBAN. [Concomitant]
     Active Substance: ARGATROBAN
     Indication: SPINAL CORD INFARCTION
  2. BAYASPIRIN 100 MG [Suspect]
     Active Substance: ASPIRIN
     Indication: SPINAL CORD INFARCTION

REACTIONS (3)
  - Spinal cord oedema [None]
  - Off label use [None]
  - Product use in unapproved indication [None]
